FAERS Safety Report 8379927-4 (Version None)
Quarter: 2012Q2

REPORT INFORMATION
  Report Type: 
  Country: None (occurrence: None)
  Receive Date: 20120523
  Receipt Date: 20120521
  Transmission Date: 20120825
  Serious: Yes (Other)
  Sender: FDA-Public Use
  Company Number: US-PFIZER INC-2012123319

PATIENT
  Sex: Male
  Weight: 108.84 kg

DRUGS (8)
  1. TRICOR [Concomitant]
     Indication: BLOOD CHOLESTEROL INCREASED
     Dosage: 145 MG, UNK
  2. VIAGRA [Suspect]
     Dosage: 50 MG, AS NEEDED
     Route: 048
     Dates: start: 20000101, end: 20000101
  3. VIAGRA [Suspect]
     Dosage: 25 MG, AS NEEDED
     Route: 048
     Dates: start: 20000101, end: 20091201
  4. VIAGRA [Suspect]
     Dosage: 100 MG, AS NEEDED
     Route: 048
     Dates: start: 20091201, end: 20100101
  5. SYNTHROID [Concomitant]
     Dosage: 0.125 MG, UNK
  6. SYNTHROID [Concomitant]
     Indication: THYROID DISORDER
     Dosage: 0.125 MG, UNK
  7. VIAGRA [Suspect]
     Indication: ERECTILE DYSFUNCTION
     Dosage: 100 MG, AS NEEDED
     Route: 048
     Dates: start: 20000101, end: 20000101
  8. ATENOLOL [Concomitant]
     Indication: HYPERTENSION
     Dosage: 25 MG, UNK

REACTIONS (6)
  - NEOPLASM MALIGNANT [None]
  - HEADACHE [None]
  - PROSTATOMEGALY [None]
  - FLUSHING [None]
  - DRUG INEFFECTIVE [None]
  - NERVE INJURY [None]
